FAERS Safety Report 8117984-0 (Version None)
Quarter: 2012Q1

REPORT INFORMATION
  Report Type: 
  Country: None (occurrence: None)
  Receive Date: 20120207
  Receipt Date: 20120125
  Transmission Date: 20120608
  Serious: Yes (Other)
  Sender: FDA-Public Use
  Company Number: FR-UCBSA-050370

PATIENT
  Sex: Female

DRUGS (2)
  1. KEPPRA [Suspect]
     Route: 048
  2. CONTRACEPTIVE TREATMENT [Concomitant]
     Indication: ORAL CONTRACEPTION
     Route: 048

REACTIONS (1)
  - PREGNANCY ON CONTRACEPTIVE [None]
